FAERS Safety Report 24533670 (Version 4)
Quarter: 2024Q4

REPORT INFORMATION
  Report Type: Spontaneous
  Country: KR (occurrence: KR)
  Receive Date: 20241022
  Receipt Date: 20241226
  Transmission Date: 20250114
  Serious: Yes (Hospitalization, Other)
  Sender: AMGEN
  Company Number: KR-AMGEN-KORSP2024205087

PATIENT
  Age: 43 Year
  Sex: Male

DRUGS (3)
  1. BLINCYTO [Suspect]
     Active Substance: BLINATUMOMAB
     Indication: Minimal residual disease
     Dosage: 9 MICROGRAM, QD MIXED IN FLUID (CYCLE 1), DRIP INFUSION
     Route: 040
     Dates: start: 20240324, end: 20240330
  2. BLINCYTO [Suspect]
     Active Substance: BLINATUMOMAB
     Indication: B precursor type acute leukaemia
     Dosage: 28 MICROGRAM, QD MIXED IN FLUID (CYCLE 1), DRIP INFUSION
     Route: 040
     Dates: start: 20240331, end: 20240420
  3. BLINCYTO [Suspect]
     Active Substance: BLINATUMOMAB
     Dosage: 28 MICROGRAM, QD MIXED IN FLUID (CYCLE 2)
     Route: 040
     Dates: start: 20240515, end: 20240611

REACTIONS (9)
  - Hepatotoxicity [Recovered/Resolved]
  - Asthenia [Recovered/Resolved]
  - Respiratory syncytial virus bronchiolitis [Unknown]
  - Central nervous system leukaemia [Unknown]
  - Staphylococcal bacteraemia [Unknown]
  - Febrile neutropenia [Unknown]
  - Cystitis haemorrhagic [Unknown]
  - Mucosal inflammation [Unknown]
  - Headache [Unknown]

NARRATIVE: CASE EVENT DATE: 20240101
